FAERS Safety Report 8576177-3 (Version None)
Quarter: 2012Q3

REPORT INFORMATION
  Report Type: 
  Country: None (occurrence: None)
  Receive Date: 20120807
  Receipt Date: 20120802
  Transmission Date: 20120928
  Serious: No
  Sender: FDA-Public Use
  Company Number: US-PFIZER INC-2012156995

PATIENT
  Sex: Female

DRUGS (2)
  1. EFFEXOR XR [Suspect]
     Indication: HOT FLUSH
     Dosage: UNK
  2. VENLAFAXINE HCL [Suspect]
     Dosage: UNK

REACTIONS (9)
  - FEELING HOT [None]
  - SWELLING [None]
  - RASH [None]
  - CONTUSION [None]
  - DRUG INEFFECTIVE [None]
  - HYPERHIDROSIS [None]
  - ERYTHEMA [None]
  - STICKY SKIN [None]
  - HAIR DISORDER [None]
